FAERS Safety Report 4960347-7 (Version None)
Quarter: 2006Q1

REPORT INFORMATION
  Report Type: 
  Country: None (occurrence: None)
  Receive Date: 20060328
  Receipt Date: 20060314
  Transmission Date: 20060701
  Serious: Yes (Other)
  Sender: FDA-Public Use
  Company Number: RENA-11632

PATIENT
  Age: 56 Year
  Sex: Male
  Weight: 73 kg

DRUGS (11)
  1. RENAGEL [Suspect]
     Indication: HYPERPHOSPHATAEMIA
     Dosage: 1 G TID PO
     Route: 048
     Dates: start: 20051109, end: 20051123
  2. CORINAE [Concomitant]
  3. RENIVEZE [Concomitant]
  4. DIOVAN [Concomitant]
  5. TENORMIN [Concomitant]
  6. ALFAROL [Concomitant]
  7. CARDENALIN [Concomitant]
  8. RIZE [Concomitant]
  9. SENNARIDE [Concomitant]
  10. EPOGIN [Concomitant]
  11. THYRADIN S [Concomitant]

REACTIONS (4)
  - DRUG EFFECT DECREASED [None]
  - DRUG INTERACTION [None]
  - HYPOTHYROIDISM [None]
  - TACHYPHYLAXIS [None]
